FAERS Safety Report 18564902 (Version 12)
Quarter: 2021Q1

REPORT INFORMATION
  Report Type: Report from Study
  Country: US (occurrence: US)
  Receive Date: 20201201
  Receipt Date: 20210324
  Transmission Date: 20210419
  Serious: Yes (Death, Hospitalization, Other)
  Sender: FDA-Public Use
  Company Number: US-AGIOS-2011US02272

PATIENT

DRUGS (1)
  1. TIBSOVO [Suspect]
     Active Substance: IVOSIDENIB
     Indication: ACUTE MYELOID LEUKAEMIA
     Dosage: 250MG, 2 TABLETS (500MG) DAILY
     Route: 048
     Dates: start: 20201105

REACTIONS (20)
  - Pain in extremity [Unknown]
  - Medial tibial stress syndrome [Unknown]
  - Blood count abnormal [Unknown]
  - Insomnia [Unknown]
  - Product administration interrupted [Unknown]
  - Malaise [Unknown]
  - Platelet count decreased [Unknown]
  - Red blood cell count abnormal [Unknown]
  - Restless legs syndrome [Unknown]
  - Pain in extremity [Not Recovered/Not Resolved]
  - Bone marrow disorder [Unknown]
  - Death [Fatal]
  - Bowel movement irregularity [Unknown]
  - Positron emission tomogram abnormal [Unknown]
  - Feeling hot [Unknown]
  - Cough [Recovered/Resolved]
  - Gait inability [Unknown]
  - Pulmonary oedema [Unknown]
  - Somnolence [Unknown]
  - Peripheral swelling [Unknown]

NARRATIVE: CASE EVENT DATE: 202012
